FAERS Safety Report 11201718 (Version 2)
Quarter: 2015Q4

REPORT INFORMATION
  Report Type: Report from Study
  Country: CA (occurrence: CA)
  Receive Date: 20150619
  Receipt Date: 20151012
  Transmission Date: 20160304
  Serious: Yes (Hospitalization)
  Sender: FDA-Public Use
  Company Number: CA-JNJFOC-20150612620

PATIENT
  Age: 38 Year
  Sex: Female
  Weight: 81 kg

DRUGS (10)
  1. BENTYL [Concomitant]
     Active Substance: DICYCLOMINE HYDROCHLORIDE
     Dosage: WHEN REQUIRED
     Route: 065
  2. REMICADE [Suspect]
     Active Substance: INFLIXIMAB
     Indication: CROHN^S DISEASE
     Route: 042
     Dates: start: 20130715
  3. PREDNISONE. [Concomitant]
     Active Substance: PREDNISONE
     Route: 065
  4. LOSEC [Concomitant]
     Active Substance: OMEPRAZOLE
     Route: 065
  5. VITAMIN B12 [Concomitant]
     Active Substance: CYANOCOBALAMIN
     Route: 065
  6. METHOTREXATE [Concomitant]
     Active Substance: METHOTREXATE
     Route: 065
  7. ACID FOLIC [Concomitant]
     Dosage: EXCEPT DAY OF METHOTREXATE
     Route: 065
  8. VITAMIN D [Concomitant]
     Active Substance: CHOLECALCIFEROL
     Route: 065
  9. MONOCOR [Concomitant]
     Active Substance: BISOPROLOL FUMARATE
     Route: 065
  10. IMOVANE [Concomitant]
     Active Substance: ZOPICLONE
     Dosage: AT NIGHT WHEN REQUIRED
     Route: 065

REACTIONS (3)
  - Abdominal pain [Unknown]
  - Post procedural discharge [Recovering/Resolving]
  - Intestinal resection [Recovered/Resolved]

NARRATIVE: CASE EVENT DATE: 20140513
